FAERS Safety Report 12505375 (Version 1)
Quarter: 2016Q2

REPORT INFORMATION
  Report Type: Spontaneous
  Country: AU (occurrence: AU)
  Receive Date: 20160628
  Receipt Date: 20160628
  Transmission Date: 20160815
  Serious: Yes (Other)
  Sender: FDA-Public Use
  Company Number: AU-BAYER-2016-119268

PATIENT
  Age: 52 Year
  Sex: Male

DRUGS (2)
  1. CIPROXIN 250 [Suspect]
     Active Substance: CIPROFLOXACIN
     Dosage: UNK
  2. TAZOCIN [Suspect]
     Active Substance: PIPERACILLIN SODIUM\TAZOBACTAM SODIUM
     Route: 042

REACTIONS (2)
  - Transitional cell carcinoma recurrent [None]
  - Sepsis [None]
